FAERS Safety Report 8583546-4 (Version None)
Quarter: 2012Q3

REPORT INFORMATION
  Report Type: 
  Country: None (occurrence: None)
  Receive Date: 20120809
  Receipt Date: 20120417
  Transmission Date: 20120928
  Serious: Yes (Life-Threatening, Hospitalization)
  Sender: FDA-Public Use
  Company Number: CN-BRISTOL-MYERS SQUIBB COMPANY-16448177

PATIENT
  Age: 46 Year
  Sex: Male

DRUGS (2)
  1. TELBIVUDINE [Suspect]
     Indication: HEPATITIS B
     Route: 048
  2. ENTECAVIR [Suspect]
     Indication: HEPATITIS B
     Route: 048

REACTIONS (1)
  - LUNG ADENOCARCINOMA [None]
